FAERS Safety Report 19820466 (Version 1)
Quarter: 2021Q3

REPORT INFORMATION
  Report Type: Spontaneous
  Country: US (occurrence: US)
  Receive Date: 20210911
  Receipt Date: 20210911
  Transmission Date: 20211014
  Serious: Yes (Hospitalization, Disabling, Other)
  Sender: FDA-Public Use
  Company Number: None

PATIENT
  Age: 46 Year
  Sex: Female
  Weight: 56.25 kg

DRUGS (6)
  1. WELLBUTRIN [Suspect]
     Active Substance: BUPROPION HYDROCHLORIDE
     Indication: ATTENTION DEFICIT HYPERACTIVITY DISORDER
     Dates: start: 20210424, end: 20210524
  2. VIT D [Concomitant]
     Active Substance: VITAMIN D NOS
  3. VITA B COMPLETX [Concomitant]
  4. WELLBUTRIN [Suspect]
     Active Substance: BUPROPION HYDROCHLORIDE
     Indication: ANXIETY
     Dates: start: 20210424, end: 20210524
  5. FISH  OIL [Concomitant]
     Active Substance: FISH OIL
  6. MAG CITRATE [Concomitant]

REACTIONS (7)
  - Weight decreased [None]
  - Gastric dilatation [None]
  - Gastrooesophageal reflux disease [None]
  - Decreased appetite [None]
  - Gastrointestinal disorder [None]
  - Abnormal faeces [None]
  - Hypophagia [None]

NARRATIVE: CASE EVENT DATE: 20210424
